FAERS Safety Report 12968963 (Version 1)
Quarter: 2016Q4

REPORT INFORMATION
  Report Type: Spontaneous
  Country: US (occurrence: US)
  Receive Date: 20161123
  Receipt Date: 20161123
  Transmission Date: 20170207
  Serious: Yes (Other)
  Sender: FDA-Public Use
  Company Number: US-BAYER-2016-223152

PATIENT
  Age: 47 Year
  Sex: Female

DRUGS (4)
  1. CLONIDIN [Concomitant]
     Active Substance: CLONIDINE
  2. HYDRALAZINE [Concomitant]
     Active Substance: HYDRALAZINE HYDROCHLORIDE
  3. ACETYLSALICYLIC ACID({=100 MG) [Suspect]
     Active Substance: ASPIRIN
     Dosage: UNK
  4. WARFARIN [Interacting]
     Active Substance: WARFARIN

REACTIONS (3)
  - Labelled drug-drug interaction medication error [None]
  - Drug administration error [None]
  - Gastrointestinal haemorrhage [None]
